FAERS Safety Report 13691083 (Version 2)
Quarter: 2017Q3

REPORT INFORMATION
  Report Type: Spontaneous
  Country: PT (occurrence: PT)
  Receive Date: 20170626
  Receipt Date: 20170721
  Transmission Date: 20171127
  Serious: Yes (Hospitalization, Other)
  Sender: FDA-Public Use
  Company Number: PT-PFIZER INC-2017179841

PATIENT
  Age: 41 Year
  Sex: Male

DRUGS (13)
  1. BUDESONIDE TEVA [Concomitant]
     Active Substance: BUDESONIDE
     Indication: RESPIRATORY FAILURE
     Dosage: 1 DF, 2X/DAY (12/12H)
     Dates: start: 20170330, end: 20170411
  2. COTRIMOXAZOLE [Concomitant]
     Active Substance: SULFAMETHOXAZOLE\TRIMETHOPRIM
     Indication: PROPHYLAXIS
     Dosage: 960 MG, 1X/DAY
     Route: 042
  3. COTRIMOXAZOLE [Concomitant]
     Active Substance: SULFAMETHOXAZOLE\TRIMETHOPRIM
     Dosage: UNK
     Route: 048
  4. IVERMECTINA [Concomitant]
     Indication: SUPERINFECTION
     Dosage: 12 MG, 1X/DAY
     Dates: start: 20170331, end: 20170404
  5. KIVEXA [Concomitant]
     Active Substance: ABACAVIR SULFATE\LAMIVUDINE
     Indication: HIV INFECTION
     Dosage: 1 DF (600MG+300MG), 1X/DAY
     Route: 048
  6. LEVETIRACETAM GENERIS [Concomitant]
     Indication: EPILEPSY
     Dosage: 250 MG, 2X/DAY (12/12H)
     Route: 042
     Dates: start: 20170330, end: 20170411
  7. ISENTRESS [Concomitant]
     Active Substance: RALTEGRAVIR POTASSIUM
     Indication: HIV INFECTION
     Dosage: 400 MG, 2X/DAY (12/12H)
     Route: 048
  8. QUETIAPINE. [Concomitant]
     Active Substance: QUETIAPINE
     Indication: PSYCHOTIC DISORDER
     Dosage: 25 MG, 2X/DAY (12/12H)
     Dates: start: 20170401
  9. NOLOTIL [Concomitant]
     Active Substance: METAMIZOLE
     Indication: PAIN
     Dosage: 2000 MG, 3X/DAY (8/8H)
     Route: 042
     Dates: start: 20170331, end: 20170411
  10. VFEND [Suspect]
     Active Substance: VORICONAZOLE
     Indication: ASPERGILLUS INFECTION
     Dosage: 200 MG, 2X/DAY (12/12H)
     Route: 042
     Dates: start: 20170207, end: 20170403
  11. METOCLOPRAMIDA LABESFAL [Concomitant]
     Indication: VOMITING
     Dosage: 10 MG, 3X/DAY (8/8H)
     Route: 042
     Dates: start: 20170330, end: 20170411
  12. MEDIFOLIN [Concomitant]
     Indication: BLOOD FOLATE DECREASED
     Dosage: 15 MG, 1X/DAY
     Route: 048
  13. IPRATROPIUM BROMIDE/SALBUTAMOL [Concomitant]
     Indication: RESPIRATORY FAILURE
     Dosage: 1 DF, 3X/DAY (8/8H)
     Dates: start: 20170330, end: 20170411

REACTIONS (6)
  - Eyelid oedema [Recovered/Resolved]
  - Metamorphopsia [Recovered/Resolved]
  - Eosinophilia [Recovering/Resolving]
  - Face oedema [Recovered/Resolved]
  - Toxicity to various agents [Recovering/Resolving]
  - Dyschromatopsia [Recovered/Resolved]

NARRATIVE: CASE EVENT DATE: 20170331
